FAERS Safety Report 10050209 (Version 1)
Quarter: 2014Q1

REPORT INFORMATION
  Report Type: Spontaneous
  Country: US (occurrence: None)
  Receive Date: 20140331
  Receipt Date: 20140331
  Transmission Date: 20141002
  Serious: Yes (Other)
  Sender: FDA-Public Use
  Company Number: None

PATIENT
  Age: 59 Year
  Sex: Male
  Weight: 83.92 kg

DRUGS (1)
  1. OXYCODONE HCL [Suspect]
     Indication: PAIN
     Dosage: 1 TABLET  FOUR TIMES DAILY  TAKEN BY MOUTH
     Route: 048
     Dates: start: 20140319, end: 20140326

REACTIONS (4)
  - Chest pain [None]
  - Pneumonia [None]
  - Product quality issue [None]
  - Drug ineffective [None]
